FAERS Safety Report 5005363-4 (Version None)
Quarter: 2006Q2

REPORT INFORMATION
  Report Type: 
  Country: None (occurrence: None)
  Receive Date: 20060518
  Receipt Date: 20060202
  Transmission Date: 20061013
  Serious: Yes (Hospitalization, Disabling)
  Sender: FDA-Public Use
  Company Number: US-MERCK-0602USA00772

PATIENT
  Age: 70 Year
  Sex: Male
  Weight: 77 kg

DRUGS (3)
  1. VIOXX [Suspect]
     Indication: OSTEOARTHRITIS
     Route: 048
     Dates: start: 20000425, end: 20040109
  2. VIOXX [Suspect]
     Route: 048
     Dates: start: 20040110, end: 20040912
  3. ULTRAM [Concomitant]
     Route: 048
     Dates: start: 20001103, end: 20011203

REACTIONS (4)
  - ACUTE MYOCARDIAL INFARCTION [None]
  - ASTHENIA [None]
  - CORONARY ARTERY DISEASE [None]
  - INGROWING NAIL [None]
